FAERS Safety Report 6832654-4 (Version None)
Quarter: 2010Q3

REPORT INFORMATION
  Report Type: 
  Country: None (occurrence: None)
  Receive Date: 20100712
  Receipt Date: 20070316
  Transmission Date: 20110219
  Serious: No
  Sender: FDA-Public Use
  Company Number: US-PFIZER INC-2007021515

PATIENT
  Sex: Female
  Weight: 69.85 kg

DRUGS (9)
  1. CHANTIX [Suspect]
     Indication: SMOKING CESSATION THERAPY
     Dates: start: 20070310
  2. METHIMAZOLE [Concomitant]
  3. TRIAMTERENE [Concomitant]
  4. VERELAN PM [Concomitant]
  5. MICARDIS [Concomitant]
  6. BUSPIRONE [Concomitant]
  7. CRESTOR [Concomitant]
  8. IRON [Concomitant]
  9. LOVAZA [Concomitant]

REACTIONS (1)
  - HYPERHIDROSIS [None]
